FAERS Safety Report 9171126 (Version 20)
Quarter: 2015Q3

REPORT INFORMATION
  Report Type: Report from Study
  Country: CA (occurrence: CA)
  Receive Date: 20130319
  Receipt Date: 20150831
  Transmission Date: 20151125
  Serious: Yes (Hospitalization, Other)
  Sender: FDA-Public Use
  Company Number: CA-ROCHE-1150718

PATIENT
  Age: 47 Year
  Sex: Female
  Weight: 74 kg

DRUGS (7)
  1. ACTEMRA [Suspect]
     Active Substance: TOCILIZUMAB
     Indication: RHEUMATOID ARTHRITIS
     Route: 042
     Dates: start: 20120709
  2. ACTEMRA [Suspect]
     Active Substance: TOCILIZUMAB
     Route: 042
     Dates: start: 20141204
  3. ACTEMRA [Suspect]
     Active Substance: TOCILIZUMAB
     Route: 042
     Dates: start: 20150127
  4. ACTEMRA [Suspect]
     Active Substance: TOCILIZUMAB
     Route: 042
     Dates: start: 20150325
  5. TYLENOL #2 (CANADA) [Concomitant]
  6. ACTEMRA [Suspect]
     Active Substance: TOCILIZUMAB
     Route: 042
     Dates: start: 20150428
  7. ARTHROTEC [Concomitant]
     Active Substance: DICLOFENAC SODIUM\MISOPROSTOL

REACTIONS (19)
  - Swelling [Not Recovered/Not Resolved]
  - Anxiety [Unknown]
  - Urinary tract infection [Recovering/Resolving]
  - Pharyngitis [Recovered/Resolved]
  - Peripheral swelling [Recovering/Resolving]
  - Agitation [Recovered/Resolved]
  - Localised infection [Not Recovered/Not Resolved]
  - Pain [Recovering/Resolving]
  - Depression [Recovering/Resolving]
  - Weight decreased [Unknown]
  - Heart rate decreased [Unknown]
  - Foot deformity [Not Recovered/Not Resolved]
  - Procedural pain [Not Recovered/Not Resolved]
  - Finger deformity [Not Recovered/Not Resolved]
  - Vomiting [Unknown]
  - Discomfort [Not Recovered/Not Resolved]
  - Blood pressure increased [Unknown]
  - Respiratory rate increased [Unknown]
  - Infusion related reaction [Unknown]

NARRATIVE: CASE EVENT DATE: 201212
